FAERS Safety Report 17854095 (Version 2)
Quarter: 2020Q2

REPORT INFORMATION
  Report Type: Spontaneous
  Country: PL (occurrence: PL)
  Receive Date: 20200603
  Receipt Date: 20200627
  Transmission Date: 20200714
  Serious: Yes (Hospitalization)
  Sender: FDA-Public Use
  Company Number: PL-ROCHE-2609738

PATIENT
  Age: 37 Year
  Sex: Male

DRUGS (6)
  1. HEPARIN [Concomitant]
     Active Substance: HEPARIN SODIUM
  2. TACROLIMUS. [Suspect]
     Active Substance: TACROLIMUS
     Indication: IMMUNOSUPPRESSION
     Route: 065
  3. ENCORTON [PREDNISONE] [Suspect]
     Active Substance: PREDNISONE
     Indication: IMMUNOSUPPRESSION
     Route: 065
  4. SULFAMETHOXAZOLE/TRIMETHOPRIM [Concomitant]
     Active Substance: SULFAMETHOXAZOLE\TRIMETHOPRIM
     Dosage: EVERY SECOND DAY
     Route: 065
  5. MYCOPHENOLATE MOFETIL. [Suspect]
     Active Substance: MYCOPHENOLATE MOFETIL
     Indication: IMMUNOSUPPRESSION
     Route: 065
  6. VALGANCICLOVIR. [Concomitant]
     Active Substance: VALGANCICLOVIR
     Dosage: EVERY SECOND DAY
     Route: 065

REACTIONS (3)
  - Skin infection [Recovered/Resolved]
  - Skin necrosis [Recovered/Resolved]
  - Wound infection [Recovered/Resolved]
